FAERS Safety Report 4981258-7 (Version None)
Quarter: 2006Q1

REPORT INFORMATION
  Report Type: 
  Country: None (occurrence: None)
  Receive Date: 20060227
  Receipt Date: 20050302
  Transmission Date: 20060701
  Serious: Yes (Hospitalization, Other)
  Sender: FDA-Public Use
  Company Number: WAES 0404USA02011

PATIENT
  Age: 35 Year
  Sex: Female

DRUGS (6)
  1. ZOCOR [Suspect]
     Indication: BLOOD CHOLESTEROL
     Dosage: SEE IMAGE
     Route: 048
     Dates: start: 20020925, end: 20030127
  2. ZOCOR [Suspect]
     Indication: HYPERCHOLESTEROLAEMIA
     Dosage: SEE IMAGE
     Route: 048
     Dates: start: 20020925, end: 20030127
  3. ZOCOR [Suspect]
     Indication: BLOOD CHOLESTEROL
     Dosage: SEE IMAGE
     Route: 048
     Dates: start: 20021101, end: 20030201
  4. ZOCOR [Suspect]
     Indication: HYPERCHOLESTEROLAEMIA
     Dosage: SEE IMAGE
     Route: 048
     Dates: start: 20021101, end: 20030201
  5. CELEXA [Concomitant]
  6. ORTHO CYCLEN-28 [Concomitant]

REACTIONS (1)
  - RHABDOMYOLYSIS [None]
